FAERS Safety Report 11593906 (Version 1)
Quarter: 2015Q4

REPORT INFORMATION
  Report Type: Spontaneous
  Country: FR (occurrence: FR)
  Receive Date: 20151005
  Receipt Date: 20151005
  Transmission Date: 20160304
  Serious: Yes (Hospitalization, Other)
  Sender: FDA-Public Use
  Company Number: FR-TEVA-596408ISR

PATIENT
  Age: 79 Year
  Sex: Male

DRUGS (5)
  1. AZILECT [Suspect]
     Active Substance: RASAGILINE MESYLATE
     Dosage: 1 DOSAGE FORMS DAILY;
     Route: 048
  2. MODOPAR 125 [Suspect]
     Active Substance: BENSERAZIDE HYDROCHLORIDE\LEVODOPA
     Indication: PARKINSON^S DISEASE
     Dosage: BENSERAZIDE 25 MG + LEVODOPA 100 MG
     Route: 048
     Dates: end: 20150615
  3. STALEVO [Suspect]
     Active Substance: CARBIDOPA\ENTACAPONE\LEVODOPA
     Dosage: 3 DOSAGE FORMS DAILY; CARBIDOPA 25 MG + LEVODOPA 125 MG
     Route: 048
  4. STALEVO [Suspect]
     Active Substance: CARBIDOPA\ENTACAPONE\LEVODOPA
     Indication: PARKINSON^S DISEASE
     Dosage: 5 DOSAGE FORMS DAILY; CARBIDOPA 37.5 MG + ENTACAPONE 200 MG + LEVODOPA 150 MG.
     Route: 048
  5. SINEMET LP 50 MG/200 MG [Suspect]
     Active Substance: CARBIDOPA\LEVODOPA
     Indication: PARKINSON^S DISEASE
     Dosage: 1 DOSAGE FORMS DAILY; CARBIDOPA 50 MG + LEVODOPA 200 MG IN THE EVENING
     Route: 048
     Dates: end: 20150615

REACTIONS (9)
  - Orthostatic hypotension [Recovered/Resolved]
  - Blood pressure fluctuation [None]
  - Extrapyramidal disorder [None]
  - Dizziness [Recovered/Resolved]
  - Malaise [Recovered/Resolved]
  - Loss of consciousness [Recovered/Resolved]
  - Akinesia [Unknown]
  - Dyskinesia [None]
  - Musculoskeletal stiffness [None]

NARRATIVE: CASE EVENT DATE: 201505
